FAERS Safety Report 5169076-0 (Version None)
Quarter: 2006Q4

REPORT INFORMATION
  Report Type: 
  Country: None (occurrence: None)
  Receive Date: 20061211
  Receipt Date: 20061122
  Transmission Date: 20070319
  Serious: Yes (Hospitalization)
  Sender: FDA-Public Use
  Company Number: DE-ROCHE-472181

PATIENT
  Age: 35 Year
  Sex: Female
  Weight: 57 kg

DRUGS (2)
  1. ROFERON-A [Suspect]
     Route: 058
     Dates: start: 20060222, end: 20061011
  2. VALETTE [Suspect]
     Indication: CONTRACEPTION
     Route: 048
     Dates: start: 20060927, end: 20061030

REACTIONS (2)
  - PNEUMONIA [None]
  - THROMBOSIS [None]
